FAERS Safety Report 21566970 (Version 1)
Quarter: 2022Q4

REPORT INFORMATION
  Report Type: Report from Study
  Country: US (occurrence: US)
  Receive Date: 20221108
  Receipt Date: 20221108
  Transmission Date: 20230113
  Serious: Yes (Hospitalization)
  Sender: FDA-Public Use
  Company Number: US-ABBVIE-4189162

PATIENT
  Sex: Male

DRUGS (2)
  1. DUOPA [Suspect]
     Active Substance: CARBIDOPA\LEVODOPA
     Indication: Product used for unknown indication
     Dosage: MORNING DOSE: 13 ML (0-13ML RANGE), CONTINUOUS DOSE: 4.5ML/HR (0-5ML RANGE), EXTRA DOSE: 1.5 ML (...
     Route: 050
     Dates: start: 202005
  2. DUOPA [Suspect]
     Active Substance: CARBIDOPA\LEVODOPA

REACTIONS (1)
  - Hospitalisation [Unknown]
